FAERS Safety Report 13014835 (Version 1)
Quarter: 2016Q4

REPORT INFORMATION
  Report Type: Spontaneous
  Country: AR (occurrence: AR)
  Receive Date: 20161209
  Receipt Date: 20161209
  Transmission Date: 20170207
  Serious: Yes (Hospitalization)
  Sender: FDA-Public Use
  Company Number: AR-BIOMARINAP-AR-2016-112076

PATIENT
  Sex: Female

DRUGS (1)
  1. NAGLAZYME [Suspect]
     Active Substance: GALSULFASE
     Indication: MUCOPOLYSACCHARIDOSIS VI
     Dosage: UNK
     Route: 042
     Dates: start: 20160908

REACTIONS (2)
  - Oxygen saturation decreased [Unknown]
  - Agitation [Unknown]
